FAERS Safety Report 8884836 (Version 1)
Quarter: 2012Q4

REPORT INFORMATION
  Report Type: 
  Country: FR (occurrence: FR)
  Receive Date: 20121102
  Receipt Date: 20121102
  Transmission Date: 20130627
  Serious: Yes (Hospitalization)
  Sender: FDA-Public Use
  Company Number: FR-SANOFI-AVENTIS-2012SA078021

PATIENT
  Age: 75 Year
  Sex: Female

DRUGS (10)
  1. LASILIX [Suspect]
     Indication: DRUG USE FOR UNKNOWN INDICATION
     Route: 048
     Dates: end: 20120526
  2. SPIRONOLACTONE [Suspect]
     Indication: DRUG USE FOR UNKNOWN INDICATION
     Route: 048
     Dates: end: 20120525
  3. RAMIPRIL [Concomitant]
     Indication: HYPERTENSION ARTERIAL
     Route: 048
     Dates: end: 20120605
  4. PREVISCAN [Concomitant]
     Route: 048
  5. ROSUVASTATIN [Concomitant]
     Route: 048
  6. CARVEDILOL [Concomitant]
     Indication: HYPERTENSION ARTERIAL
     Route: 048
  7. LANSOPRAZOLE [Concomitant]
     Route: 048
  8. ZOLPIDEM [Concomitant]
     Route: 048
  9. RISEDRONATE SODIUM [Concomitant]
     Route: 048
  10. CACIT VITAMINE D3 [Concomitant]
     Route: 048

REACTIONS (2)
  - Hyperkalaemia [Recovering/Resolving]
  - Hyponatraemia [Recovering/Resolving]
